FAERS Safety Report 4305778-3 (Version None)
Quarter: 2004Q1

REPORT INFORMATION
  Report Type: 
  Country: None (occurrence: None)
  Receive Date: 20040225
  Receipt Date: 20040212
  Transmission Date: 20041129
  Serious: Yes (Hospitalization)
  Sender: FDA-Public Use
  Company Number: HQWYE938112FEB04

PATIENT
  Age: 37 Year
  Sex: Female

DRUGS (6)
  1. IBUPROFEN AND PSEUDOEPHEDRINE HCL [Suspect]
     Indication: RHINITIS
     Dosage: 2 TABLETS X 2/D  ORAL
     Route: 048
     Dates: start: 20031210, end: 20071215
  2. AMOXICILLIN [Suspect]
     Indication: RHINITIS
     Dosage: ^3 G/D^
     Dates: start: 20031210, end: 20031215
  3. HEXALYSE  (BICLOTYMOL/DEQUALINIUM CHLORIDE/ENOXOLONE/LYSOZYME/PAPAIN, [Suspect]
     Indication: RHINITIS
     Dosage: ^8/D^
     Dates: start: 20031210, end: 20031215
  4. MUCOTHIOL (CARBOCISTEINE/PROTEASE, ) [Suspect]
     Indication: RHINITIS
     Dosage: ^200 MG X 3D^
     Dates: start: 20031210, end: 20031215
  5. NECYRANE (RITIMETAN MAGNESIUM,  ) [Suspect]
     Indication: RHINITIS
     Dosage: ^2 X 4/D^; INTRANASAL
     Dates: start: 20031210, end: 20031215
  6. TRINORDIOL (LEVONORGESTREL/ETHINYL ESTRADIOL) [Concomitant]

REACTIONS (6)
  - BLOOD ALBUMIN DECREASED [None]
  - GLOMERULONEPHROPATHY [None]
  - LUNG DISORDER [None]
  - NEPHROTIC SYNDROME [None]
  - PROTEIN TOTAL DECREASED [None]
  - WEIGHT INCREASED [None]
